FAERS Safety Report 18411752 (Version 2)
Quarter: 2020Q4

REPORT INFORMATION
  Report Type: Spontaneous
  Country: US (occurrence: US)
  Receive Date: 20201021
  Receipt Date: 20201205
  Transmission Date: 20210114
  Serious: Yes (Hospitalization, Other)
  Sender: FDA-Public Use
  Company Number: NVSC2020US277150

PATIENT
  Age: 78 Year
  Sex: Male
  Weight: 70.31 kg

DRUGS (11)
  1. ENTRESTO [Suspect]
     Active Substance: SACUBITRIL\VALSARTAN
     Dosage: 0.5 DF, BID (24MG/26MG)
     Route: 065
  2. CARVEDILOL. [Suspect]
     Active Substance: CARVEDILOL
     Indication: CARDIAC DISORDER
     Dosage: UNK
     Route: 065
     Dates: start: 2020
  3. ENTRESTO [Suspect]
     Active Substance: SACUBITRIL\VALSARTAN
     Dosage: 100 MG (49MG/51MG), BID
     Route: 065
  4. EPLERENONE. [Suspect]
     Active Substance: EPLERENONE
     Indication: CARDIAC DISORDER
     Dosage: 25 MG, QD
     Route: 065
     Dates: start: 202006
  5. EPLERENONE. [Suspect]
     Active Substance: EPLERENONE
     Dosage: 0.5 DF (25 MG), QD
     Route: 065
  6. ACALABRUTINIB. [Concomitant]
     Active Substance: ACALABRUTINIB
     Indication: LYMPHOMA
     Dosage: 100 MG, BID
     Route: 065
     Dates: start: 202006
  7. FUROSEMIDE. [Suspect]
     Active Substance: FUROSEMIDE
     Indication: PULMONARY OEDEMA
  8. IMBRUVICA [Suspect]
     Active Substance: IBRUTINIB
     Indication: LYMPHOMA
     Dosage: UNK
     Route: 048
     Dates: end: 202003
  9. IMBRUVICA [Suspect]
     Active Substance: IBRUTINIB
     Dosage: UNK
     Route: 048
     Dates: end: 202006
  10. ENTRESTO [Suspect]
     Active Substance: SACUBITRIL\VALSARTAN
     Indication: CARDIAC DISORDER
     Dosage: 50 MG (24MG/26MG), BID
     Route: 065
     Dates: start: 202006
  11. FUROSEMIDE. [Suspect]
     Active Substance: FUROSEMIDE
     Indication: CARDIAC FAILURE CONGESTIVE
     Dosage: 20 MG, QD
     Route: 048
     Dates: start: 202003, end: 202009

REACTIONS (8)
  - Wrong technique in product usage process [Unknown]
  - Dizziness [Unknown]
  - Ejection fraction decreased [Recovering/Resolving]
  - Underdose [Unknown]
  - Dyspnoea [Unknown]
  - Pulmonary oedema [Unknown]
  - Vision blurred [Unknown]
  - Photophobia [Not Recovered/Not Resolved]

NARRATIVE: CASE EVENT DATE: 202004
